FAERS Safety Report 16518141 (Version 1)
Quarter: 2019Q3

REPORT INFORMATION
  Report Type: Spontaneous
  Country: US (occurrence: US)
  Receive Date: 20190702
  Receipt Date: 20190702
  Transmission Date: 20191004
  Serious: Yes (Other)
  Sender: FDA-Public Use
  Company Number: None

PATIENT
  Age: 39 Year
  Sex: Female
  Weight: 53.07 kg

DRUGS (2)
  1. BUPROPION XL [Suspect]
     Active Substance: BUPROPION
     Indication: MAJOR DEPRESSION
     Dates: start: 20180901, end: 20180930
  2. BUPROPION XL [Suspect]
     Active Substance: BUPROPION
     Indication: MAJOR DEPRESSION
     Dates: end: 20180930

REACTIONS (6)
  - Major depression [None]
  - Negative thoughts [None]
  - Product substitution issue [None]
  - Psychomotor hyperactivity [None]
  - Drug ineffective [None]
  - Aggression [None]
